FAERS Safety Report 6755535-3 (Version None)
Quarter: 2010Q2

REPORT INFORMATION
  Report Type: 
  Country: None (occurrence: None)
  Receive Date: 20100604
  Receipt Date: 20100602
  Transmission Date: 20101027
  Serious: Yes (Life-Threatening)
  Sender: FDA-Public Use
  Company Number: FR-ASTRAZENECA-2010SE25563

PATIENT
  Age: 69 Year
  Sex: Female

DRUGS (3)
  1. DIPRIVAN [Suspect]
     Indication: INDUCTION OF ANAESTHESIA
     Route: 042
     Dates: start: 20100113
  2. CELOCURIN [Suspect]
     Indication: INDUCTION OF ANAESTHESIA
     Route: 042
     Dates: start: 20100113
  3. ULTIVA [Suspect]
     Indication: INDUCTION OF ANAESTHESIA
     Route: 042

REACTIONS (1)
  - CIRCULATORY COLLAPSE [None]
